FAERS Safety Report 18886053 (Version 1)
Quarter: 2021Q1

REPORT INFORMATION
  Report Type: Spontaneous
  Country: US (occurrence: US)
  Receive Date: 20210212
  Receipt Date: 20210212
  Transmission Date: 20210420
  Serious: Yes (Life-Threatening)
  Sender: FDA-Public Use
  Company Number: None

PATIENT
  Age: 61 Year
  Sex: Female
  Weight: 67.5 kg

DRUGS (1)
  1. CARVEDILOL 25 MG [Suspect]
     Active Substance: CARVEDILOL
     Indication: CARDIAC FAILURE
     Dates: start: 20201130, end: 20210210

REACTIONS (4)
  - Pruritus [None]
  - Blood pressure increased [None]
  - Product formulation issue [None]
  - Product quality issue [None]

NARRATIVE: CASE EVENT DATE: 20201215
